FAERS Safety Report 22521669 (Version 2)
Quarter: 2023Q2

REPORT INFORMATION
  Report Type: Spontaneous
  Country: US (occurrence: US)
  Receive Date: 20230605
  Receipt Date: 20230630
  Transmission Date: 20230721
  Serious: Yes (Other)
  Sender: FDA-Public Use
  Company Number: US-APELLIS PHARMACEUTICALS-APL-2023-002447

PATIENT
  Age: 84 Year
  Sex: Female

DRUGS (2)
  1. SYFOVRE [Suspect]
     Active Substance: PEGCETACOPLAN
     Indication: Dry age-related macular degeneration
     Dosage: OS
     Dates: start: 20230327, end: 20230418
  2. SYFOVRE [Suspect]
     Active Substance: PEGCETACOPLAN
     Dosage: OD
     Dates: start: 20230327, end: 20230418

REACTIONS (6)
  - Ocular hypertension [Recovered/Resolved]
  - Ocular hypertension [Recovered/Resolved]
  - Visual impairment [Recovered/Resolved]
  - Visual impairment [Recovered/Resolved]
  - Uveitis [Recovered/Resolved]
  - Uveitis [Recovered/Resolved]

NARRATIVE: CASE EVENT DATE: 20230418
